FAERS Safety Report 7672872-9 (Version None)
Quarter: 2011Q3

REPORT INFORMATION
  Report Type: 
  Country: None (occurrence: None)
  Receive Date: 20110809
  Receipt Date: 20110627
  Transmission Date: 20111222
  Serious: Yes (Other)
  Sender: FDA-Public Use
  Company Number: PHHY2011IT58918

PATIENT
  Sex: Female

DRUGS (5)
  1. TEGRETOL [Suspect]
     Indication: PARTIAL SEIZURES
     Dosage: 500 MG, DAILY
     Route: 048
     Dates: start: 20110315, end: 20110420
  2. DEPAKENE [Concomitant]
     Dosage: 700 MG
     Route: 048
     Dates: start: 20090701, end: 20110330
  3. NOPRON [Concomitant]
     Dosage: 2.5 MG/L
     Route: 048
     Dates: end: 20110228
  4. OXCARBAZEPINE [Suspect]
     Dosage: 750 MG, DAILY
     Route: 048
  5. OXCARBAZEPINE [Suspect]
     Indication: PARTIAL SEIZURES
     Dosage: 750 MG, UNK
     Route: 048
     Dates: start: 20101223, end: 20110330

REACTIONS (3)
  - CENTRAL NERVOUS SYSTEM LESION [None]
  - PRECOCIOUS PUBERTY [None]
  - OESTRADIOL DECREASED [None]
